FAERS Safety Report 12912052 (Version 1)
Quarter: 2016Q4

REPORT INFORMATION
  Report Type: Spontaneous
  Country: US (occurrence: US)
  Receive Date: 20161102
  Receipt Date: 20161102
  Transmission Date: 20170207
  Serious: Yes (Hospitalization)
  Sender: FDA-Public Use
  Company Number: None

PATIENT
  Age: 64 Year
  Sex: Male
  Weight: 83.2 kg

DRUGS (2)
  1. DIPHENHYDRAMINE. [Suspect]
     Active Substance: DIPHENHYDRAMINE
     Indication: RHINITIS
     Route: 048
     Dates: start: 20160609, end: 20160616
  2. DIPHENHYDRAMINE. [Suspect]
     Active Substance: DIPHENHYDRAMINE
     Indication: INSOMNIA
     Route: 048
     Dates: start: 20160609, end: 20160616

REACTIONS (4)
  - Blood lactic acid increased [None]
  - Toxicity to various agents [None]
  - Anticholinergic syndrome [None]
  - Mental status changes [None]

NARRATIVE: CASE EVENT DATE: 20160616
